FAERS Safety Report 8258644-5 (Version None)
Quarter: 2012Q2

REPORT INFORMATION
  Report Type: 
  Country: None (occurrence: None)
  Receive Date: 20120404
  Receipt Date: 20120329
  Transmission Date: 20120825
  Serious: Yes (Other)
  Sender: FDA-Public Use
  Company Number: AU-SANOFI-AVENTIS-2012SA021963

PATIENT
  Age: 6 Year
  Sex: Female

DRUGS (5)
  1. LEUPROLIDE ACETATE [Suspect]
     Indication: PRECOCIOUS PUBERTY
     Dosage: DEPOT INJECTION AT 3 MONTHLY INTERVALS
     Route: 030
  2. LEUPROLIDE ACETATE [Suspect]
     Dosage: SECOND DEPOT INJECTION WAS GIVEN AFTER 3 MONTHS
     Route: 030
  3. LEUPROLIDE ACETATE [Suspect]
     Dosage: 6 MONTHS AFTER INITIAL DEPOT INJECTION
     Route: 030
  4. LEUPROLIDE ACETATE [Suspect]
     Dosage: 9 MONTHS AFTER INITIAL DEPOT INJECTION
     Route: 030
  5. LEUPROLIDE ACETATE [Suspect]
     Dosage: SUBCUTANEOUS, LEUPRORELIN WAS TRIALLED IN INCREASING DOSES WEEKLY FOR 3 WEEKS
     Route: 058

REACTIONS (4)
  - SKIN NECROSIS [None]
  - SCAR [None]
  - ABSCESS STERILE [None]
  - SKIN LESION [None]
